FAERS Safety Report 11526078 (Version 1)
Quarter: 2015Q3

REPORT INFORMATION
  Report Type: Spontaneous
  Country: US (occurrence: US)
  Receive Date: 20150918
  Receipt Date: 20150918
  Transmission Date: 20151125
  Serious: Yes (Other)
  Sender: FDA-Public Use
  Company Number: US-TAKEDA-TPA2012A07538

PATIENT

DRUGS (7)
  1. LANTUS [Concomitant]
     Active Substance: INSULIN GLARGINE
  2. MAXAIT [Concomitant]
  3. ACTOS [Suspect]
     Active Substance: PIOGLITAZONE HYDROCHLORIDE
     Indication: TYPE 2 DIABETES MELLITUS
     Dates: start: 2005, end: 2009
  4. GLUCOPHAGE [Concomitant]
     Active Substance: METFORMIN HYDROCHLORIDE
  5. GLUCOTROL [Concomitant]
     Active Substance: GLIPIZIDE
  6. METFORMIN [Concomitant]
     Active Substance: METFORMIN HYDROCHLORIDE
  7. AMARYL [Concomitant]
     Active Substance: GLIMEPIRIDE

REACTIONS (7)
  - Cardiac failure congestive [Unknown]
  - Back pain [Unknown]
  - Blood urine present [Unknown]
  - Blood creatinine increased [Unknown]
  - Renal failure [Unknown]
  - Chromaturia [Unknown]
  - Vision blurred [Unknown]

NARRATIVE: CASE EVENT DATE: 2010
